FAERS Safety Report 15219467 (Version 4)
Quarter: 2020Q1

REPORT INFORMATION
  Report Type: Report from Study
  Country: US (occurrence: US)
  Receive Date: 20180731
  Receipt Date: 20200131
  Transmission Date: 20200409
  Serious: Yes (Hospitalization, Other)
  Sender: FDA-Public Use
  Company Number: PHHY2018US060763

PATIENT
  Age: 9 Year
  Sex: Female
  Weight: 19.9 kg

DRUGS (14)
  1. METOCLOPRAMIDE. [Concomitant]
     Active Substance: METOCLOPRAMIDE
     Indication: NAUSEA
     Dosage: 10 MG, QID
     Route: 048
     Dates: start: 20151228
  2. CYCLOPHOSPHAMIDE. [Suspect]
     Active Substance: CYCLOPHOSPHAMIDE
     Indication: NEOPLASM MALIGNANT
     Dosage: 250 MG/M2, EVERY 21 DAYS (MAXIMUM 5 DAYS)
     Route: 042
     Dates: start: 20180614, end: 20180618
  3. MARINOL [Concomitant]
     Active Substance: DRONABINOL
     Indication: VOMITING
  4. ACETAMINOPHEN. [Concomitant]
     Active Substance: ACETAMINOPHEN
     Indication: ABDOMINAL PAIN
     Dosage: 240 MG, Q4H
     Route: 048
     Dates: start: 20180507
  5. ONDANSETRON [Concomitant]
     Active Substance: ONDANSETRON
     Indication: NAUSEA
     Dosage: 2 MG, TID
     Route: 048
     Dates: start: 20180326
  6. LORAZEPAM. [Concomitant]
     Active Substance: LORAZEPAM
     Indication: NAUSEA
     Dosage: 0.26 MG, Q4H
     Route: 048
     Dates: start: 20180317
  7. TOPOTECAN HYDROCHLORIDE. [Suspect]
     Active Substance: TOPOTECAN HYDROCHLORIDE
     Indication: NEOPLASM MALIGNANT
     Dosage: 0.75 MG/M2, EVERY 21 DAYS (MAXIMUM 5 DAYS)
     Route: 042
     Dates: start: 20180614, end: 20180618
  8. MARINOL [Concomitant]
     Active Substance: DRONABINOL
     Indication: NAUSEA
     Dosage: 5 MG, Q6H
     Route: 048
     Dates: start: 20180515
  9. NEULASTA [Concomitant]
     Active Substance: PEGFILGRASTIM
     Indication: NEUTROPENIA
     Dosage: 2 MG, QD
     Route: 058
     Dates: start: 20180620, end: 20180620
  10. VENETOCLAX. [Suspect]
     Active Substance: VENETOCLAX
     Dosage: 350 MG, QD
     Route: 065
     Dates: start: 20180524, end: 20180621
  11. BACTRIM [Concomitant]
     Active Substance: SULFAMETHOXAZOLE\TRIMETHOPRIM
     Indication: INFECTION PROPHYLAXIS
     Dosage: UNK
     Route: 048
     Dates: start: 20180316
  12. METOCLOPRAMIDE. [Concomitant]
     Active Substance: METOCLOPRAMIDE
     Indication: VOMITING
  13. VENETOCLAX. [Suspect]
     Active Substance: VENETOCLAX
     Indication: NEOPLASM MALIGNANT
     Dosage: 170 MG, QD
     Route: 065
     Dates: start: 20180523
  14. ALLOPURINOL. [Concomitant]
     Active Substance: ALLOPURINOL
     Indication: TUMOUR LYSIS SYNDROME
     Dosage: 300 MG, TID
     Route: 048
     Dates: start: 20180522, end: 20180525

REACTIONS (17)
  - Refeeding syndrome [Unknown]
  - Dizziness [Unknown]
  - Blood magnesium decreased [Unknown]
  - Metabolic acidosis [Unknown]
  - Pyrexia [Unknown]
  - Febrile neutropenia [Recovered/Resolved]
  - Renal tubular injury [Unknown]
  - Electrolyte imbalance [Unknown]
  - Dehydration [Unknown]
  - Hypophosphataemia [Unknown]
  - Sinus tachycardia [Unknown]
  - Blood phosphorus decreased [Unknown]
  - Blood potassium decreased [Unknown]
  - Diarrhoea [Recovered/Resolved]
  - Fatigue [Unknown]
  - Vomiting [Recovered/Resolved]
  - Urine output decreased [Unknown]

NARRATIVE: CASE EVENT DATE: 20180608
